FAERS Safety Report 15122092 (Version 1)
Quarter: 2018Q3

REPORT INFORMATION
  Report Type: Spontaneous
  Country: US (occurrence: US)
  Receive Date: 20180709
  Receipt Date: 20180709
  Transmission Date: 20181010
  Serious: Yes (Hospitalization, Other)
  Sender: FDA-Public Use
  Company Number: US-OTSUKA-2018_016565

PATIENT
  Sex: Female

DRUGS (3)
  1. ABILIFY [Suspect]
     Active Substance: ARIPIPRAZOLE
     Indication: POST-TRAUMATIC STRESS DISORDER
     Dosage: 5 MG, QD
     Route: 065
  2. ABILIFY [Suspect]
     Active Substance: ARIPIPRAZOLE
     Indication: MAJOR DEPRESSION
     Dosage: 2 MG, QD
     Route: 065
     Dates: start: 2010
  3. ABILIFY [Suspect]
     Active Substance: ARIPIPRAZOLE
     Dosage: 15 MG, QD
     Route: 065
     Dates: end: 2016

REACTIONS (16)
  - Suicide attempt [Not Recovered/Not Resolved]
  - Product use in unapproved indication [Unknown]
  - Anxiety [Unknown]
  - Emotional distress [Unknown]
  - Crime [Unknown]
  - Loss of employment [Unknown]
  - Mental disorder [Not Recovered/Not Resolved]
  - Suspiciousness [Unknown]
  - Neuropsychiatric symptoms [Unknown]
  - Suicidal ideation [Not Recovered/Not Resolved]
  - Pain [Unknown]
  - Partner stress [Unknown]
  - Economic problem [Unknown]
  - Obsessive-compulsive disorder [Unknown]
  - Depression [Unknown]
  - Gambling disorder [Not Recovered/Not Resolved]
